FAERS Safety Report 18741708 (Version 2)
Quarter: 2021Q2

REPORT INFORMATION
  Report Type: Report from Study
  Country: US (occurrence: US)
  Receive Date: 20210114
  Receipt Date: 20210614
  Transmission Date: 20210717
  Serious: Yes (Life-Threatening, Hospitalization, Other)
  Sender: FDA-Public Use
  Company Number: US-GILEAD-2021-0512336

PATIENT
  Age: 78 Year
  Sex: Male
  Weight: 72.6 kg

DRUGS (12)
  1. ORENITRAM [Suspect]
     Active Substance: TREPROSTINIL
     Dosage: 10 MG, TID
     Route: 048
  2. SILDENAFIL CITRATE. [Suspect]
     Active Substance: SILDENAFIL CITRATE
     Indication: PULMONARY HYPERTENSION
     Dosage: 60 MG, TID
     Route: 065
  3. ORENITRAM [Suspect]
     Active Substance: TREPROSTINIL
     Dosage: 7 MG, Q8H
     Route: 048
     Dates: end: 20201230
  4. REMODULIN [Suspect]
     Active Substance: TREPROSTINIL
     Indication: PULMONARY ARTERIAL HYPERTENSION
     Dosage: UNK
     Route: 042
     Dates: start: 202105
  5. AMBRISENTAN [Suspect]
     Active Substance: AMBRISENTAN
     Indication: PULMONARY ARTERIAL HYPERTENSION
     Dosage: UNK
     Route: 065
  6. ORENITRAM [Suspect]
     Active Substance: TREPROSTINIL
     Indication: PULMONARY ARTERIAL HYPERTENSION
     Dosage: 5 MG, Q8H
     Route: 048
     Dates: start: 20201125
  7. REMODULIN [Suspect]
     Active Substance: TREPROSTINIL
     Dosage: 0.06 UG/KG
     Route: 042
     Dates: start: 202105
  8. REMODULIN [Suspect]
     Active Substance: TREPROSTINIL
     Dosage: 0.06 UG/KG
     Route: 042
     Dates: start: 202105, end: 202105
  9. ORENITRAM [Suspect]
     Active Substance: TREPROSTINIL
     Dosage: 8 MG, Q8H
     Route: 048
     Dates: start: 20201230
  10. ORENITRAM [Suspect]
     Active Substance: TREPROSTINIL
     Dosage: 11.5 MG, TID
     Route: 048
     Dates: start: 202104, end: 202105
  11. ORENITRAM [Suspect]
     Active Substance: TREPROSTINIL
     Dosage: 12 MG, TID
     Route: 048
     Dates: start: 20210504
  12. ELIQUIS [Concomitant]
     Active Substance: APIXABAN

REACTIONS (24)
  - Nephrolithiasis [Unknown]
  - Heart rate irregular [Unknown]
  - Blood pressure decreased [Unknown]
  - Chromaturia [Recovered/Resolved]
  - Photopsia [Recovered/Resolved]
  - Abdominal pain [Unknown]
  - Pulmonary arterial hypertension [Unknown]
  - Pyrexia [Unknown]
  - Nausea [Not Recovered/Not Resolved]
  - Right ventricular failure [Unknown]
  - Loss of consciousness [Recovered/Resolved]
  - Fall [Recovered/Resolved]
  - Dizziness [Recovered/Resolved]
  - Productive cough [Unknown]
  - Urinary tract infection [Unknown]
  - Back pain [Unknown]
  - Flank pain [Unknown]
  - Oedema peripheral [Recovered/Resolved]
  - Diarrhoea [Not Recovered/Not Resolved]
  - Insomnia [Unknown]
  - Dyspnoea exertional [Unknown]
  - Flushing [Unknown]
  - Acute kidney injury [Unknown]
  - Vomiting [Unknown]

NARRATIVE: CASE EVENT DATE: 2021
